FAERS Safety Report 9955010 (Version 2)
Quarter: 2014Q1

REPORT INFORMATION
  Report Type: Spontaneous
  Country: US (occurrence: US)
  Receive Date: 20140304
  Receipt Date: 20140304
  Transmission Date: 20141002
  Serious: No
  Sender: FDA-Public Use
  Company Number: US-ABBVIE-12P-163-0893635-00

PATIENT
  Sex: Male
  Weight: 105.33 kg

DRUGS (9)
  1. HUMIRA [Suspect]
     Indication: RHEUMATOID ARTHRITIS
     Dates: start: 2007
  2. HUMIRA [Suspect]
     Indication: PSORIATIC ARTHROPATHY
  3. METHOTREXATE [Concomitant]
     Indication: RHEUMATOID ARTHRITIS
  4. UNKNOWN PAIN MEDICATION [Concomitant]
     Indication: RHEUMATOID ARTHRITIS
  5. COUMADIN [Concomitant]
     Indication: CARDIAC VALVE DISEASE
  6. TORVASTATIN [Concomitant]
     Indication: BLOOD CHOLESTEROL INCREASED
  7. AMLODOPINE [Concomitant]
     Indication: HYPERTENSION
  8. ZETIA [Concomitant]
     Indication: PROPHYLAXIS
  9. NETOPROLOL [Concomitant]
     Indication: PRODUCT USED FOR UNKNOWN INDICATION

REACTIONS (4)
  - Device malfunction [Recovered/Resolved]
  - Injection site pain [Not Recovered/Not Resolved]
  - Injection site haemorrhage [Recovered/Resolved]
  - Injection site reaction [Not Recovered/Not Resolved]
